FAERS Safety Report 24650797 (Version 1)
Quarter: 2024Q4

REPORT INFORMATION
  Report Type: Spontaneous
  Country: US (occurrence: US)
  Receive Date: 20241122
  Receipt Date: 20241122
  Transmission Date: 20250114
  Serious: No
  Sender: SANOFI AVENTIS
  Company Number: US-SA-2024SA335306

PATIENT
  Sex: Female
  Weight: 57.33 kg

DRUGS (2)
  1. DUPIXENT [Suspect]
     Active Substance: DUPILUMAB
     Indication: Dermatitis atopic
     Dosage: 400 MG
  2. DUPIXENT [Suspect]
     Active Substance: DUPILUMAB
     Dosage: 200 MG

REACTIONS (5)
  - Eczema [Unknown]
  - Skin exfoliation [Unknown]
  - Rash [Unknown]
  - Dry skin [Unknown]
  - Erythema [Unknown]
